FAERS Safety Report 11499142 (Version 2)
Quarter: 2016Q4

REPORT INFORMATION
  Report Type: Spontaneous
  Country: US (occurrence: US)
  Receive Date: 20150913
  Receipt Date: 20161222
  Transmission Date: 20170206
  Serious: Yes (Hospitalization, Other)
  Sender: FDA-Public Use
  Company Number: US-ELI_LILLY_AND_COMPANY-US201509002838

PATIENT
  Age: 67 Year
  Sex: Female
  Weight: 77.6 kg

DRUGS (4)
  1. CYMBALTA [Suspect]
     Active Substance: DULOXETINE HYDROCHLORIDE
     Indication: PRODUCT USED FOR UNKNOWN INDICATION
     Dosage: 30 MG, QD
     Route: 048
     Dates: start: 20080123
  2. ELAVIL [Concomitant]
     Active Substance: AMITRIPTYLINE HYDROCHLORIDE
     Indication: PRODUCT USED FOR UNKNOWN INDICATION
     Dosage: UNK, UNKNOWN
     Route: 065
  3. REGLAN [Concomitant]
     Active Substance: METOCLOPRAMIDE HYDROCHLORIDE
     Indication: PRODUCT USED FOR UNKNOWN INDICATION
     Dosage: UNK, UNKNOWN
     Route: 065
  4. CYMBALTA [Suspect]
     Active Substance: DULOXETINE HYDROCHLORIDE
     Dosage: 60 MG, QD
     Route: 048

REACTIONS (21)
  - Rhabdomyolysis [Unknown]
  - Neuroleptic malignant syndrome [Unknown]
  - Withdrawal syndrome [Unknown]
  - Serotonin syndrome [Unknown]
  - Affect lability [Unknown]
  - Asthenia [Unknown]
  - Seizure [Unknown]
  - Anxiety [Unknown]
  - Dizziness [Unknown]
  - Vertigo [Unknown]
  - Lethargy [Unknown]
  - Gait disturbance [Unknown]
  - Confusional state [Unknown]
  - Hypomania [Unknown]
  - Vomiting [Unknown]
  - Hallucination, visual [Unknown]
  - Amnesia [Unknown]
  - Panic attack [Unknown]
  - Fall [Unknown]
  - Nausea [Unknown]
  - Diarrhoea [Unknown]

NARRATIVE: CASE EVENT DATE: 20131013
